FAERS Safety Report 5229140-4 (Version None)
Quarter: 2007Q1

REPORT INFORMATION
  Report Type: 
  Country: None (occurrence: None)
  Receive Date: 20061201
  Receipt Date: 20060912
  Transmission Date: 20070707
  Serious: No
  Sender: FDA-Public Use
  Company Number: US200609003093

PATIENT
  Age: 64 Year
  Sex: Male
  Weight: 90.7 kg

DRUGS (3)
  1. CYMBALTA [Suspect]
     Dosage: ORAL
     Route: 048
  2. SAW PALMETTO (SERENOA REPENS) [Concomitant]
  3. VITAMINS NOS [Concomitant]

REACTIONS (1)
  - URINE ODOUR ABNORMAL [None]
